FAERS Safety Report 8453938 (Version 5)
Quarter: 2012Q4

REPORT INFORMATION
  Report Type: 
  Country: US (occurrence: US)
  Receive Date: 20120312
  Receipt Date: 20121024
  Transmission Date: 20130627
  Serious: Yes (Hospitalization, Disabling, Other)
  Sender: FDA-Public Use
  Company Number: US-009507513-1203USA01076

PATIENT

DRUGS (17)
  1. FOSAMAX [Suspect]
     Indication: OSTEOPOROSIS
     Dosage: 70 mg, QW
     Route: 048
     Dates: start: 20020105, end: 20100419
  2. FOSAMAX [Suspect]
     Indication: OSTEOPENIA
     Dosage: 70 mg, QW
     Route: 048
     Dates: start: 20031227, end: 20080129
  3. FOSAMAX [Suspect]
     Dosage: 70 mg, UNK
     Route: 048
     Dates: start: 20080228, end: 20080826
  4. ALENDRONATE SODIUM [Suspect]
     Dosage: 70 mg, UNK
     Route: 048
     Dates: start: 20080925, end: 20091005
  5. ALENDRONATE SODIUM [Suspect]
     Dosage: 70 mg, UNK
     Route: 048
     Dates: start: 20091112, end: 20100406
  6. ALENDRONATE SODIUM [Suspect]
     Dosage: 70 mg, UNK
     Route: 048
     Dates: start: 20100204, end: 20100301
  7. CORTICOSTEROIDS (UNSPECIFIED) [Concomitant]
     Dates: start: 1990, end: 2003
  8. ARAVA [Concomitant]
     Indication: RHEUMATOID ARTHRITIS
     Dosage: 20 mg, qd
     Route: 048
     Dates: start: 200312
  9. ATREXEL [Concomitant]
     Indication: RHEUMATOID ARTHRITIS
     Dosage: 15 mg, QW
     Route: 048
     Dates: start: 200402, end: 201109
  10. RALOXIFENE HYDROCHLORIDE [Concomitant]
     Indication: OSTEOPENIA
     Dates: start: 20020319, end: 20020423
  11. RALOXIFENE HYDROCHLORIDE [Concomitant]
     Indication: OSTEOPOROSIS
  12. NORVASC [Concomitant]
     Indication: HYPERTENSION
     Dosage: 10 mg, qd
     Route: 048
     Dates: start: 200601
  13. AMLODIPINE [Concomitant]
     Indication: HYPERTENSION
     Dates: start: 200706, end: 201108
  14. MK-0152 [Concomitant]
     Indication: HYPERTENSION
     Dosage: 25 mg, qd
     Route: 048
     Dates: start: 2004, end: 201108
  15. PRINIVIL [Concomitant]
     Indication: HYPERTENSION
     Dosage: 20 mg, qd
     Route: 048
     Dates: start: 200502, end: 201108
  16. LEFLUNOMIDE [Concomitant]
     Indication: HYPERTENSION
     Dates: start: 200603, end: 201108
  17. MEDROL [Concomitant]
     Indication: RHEUMATOID ARTHRITIS
     Dosage: 40 mg, UNK

REACTIONS (33)
  - Musculoskeletal disorder [Unknown]
  - Gait disturbance [Unknown]
  - Cough [Unknown]
  - Urge incontinence [Unknown]
  - Upper respiratory tract infection [Unknown]
  - Muscle strain [Unknown]
  - Lethargy [Unknown]
  - Electrocardiogram ST-T change [Unknown]
  - Hypokalaemia [Unknown]
  - Chondrocalcinosis [Unknown]
  - Spinal osteoarthritis [Unknown]
  - Cough [Unknown]
  - Osteopenia [Unknown]
  - Back pain [Unknown]
  - Musculoskeletal discomfort [Unknown]
  - Dyspepsia [Unknown]
  - Dyspepsia [Unknown]
  - Pain in extremity [Unknown]
  - Dizziness [Unknown]
  - Arthralgia [Not Recovered/Not Resolved]
  - Pruritus [Unknown]
  - Chest pain [Unknown]
  - Low turnover osteopathy [Not Recovered/Not Resolved]
  - Uterine disorder [Unknown]
  - Femur fracture [Not Recovered/Not Resolved]
  - Muscular weakness [Unknown]
  - Impaired healing [Unknown]
  - Fall [Unknown]
  - Rib fracture [Recovering/Resolving]
  - Foot fracture [Unknown]
  - Anaemia [Unknown]
  - Vulvovaginal dryness [Unknown]
  - Fracture nonunion [Unknown]
